FAERS Safety Report 22060487 (Version 1)
Quarter: 2023Q1

REPORT INFORMATION
  Report Type: Spontaneous
  Country: US (occurrence: US)
  Receive Date: 20230303
  Receipt Date: 20230303
  Transmission Date: 20230417
  Serious: No
  Sender: FDA-Public Use
  Company Number: US-TAKEDA-2023TUS022220

PATIENT
  Sex: Male
  Weight: 109 kg

DRUGS (1)
  1. GAMMAGARD LIQUID [Suspect]
     Active Substance: HUMAN IMMUNOGLOBULIN G
     Indication: Immunodeficiency common variable
     Dosage: 30 GRAM, QD
     Route: 065
     Dates: start: 2016

REACTIONS (3)
  - Phlebitis [Unknown]
  - Migraine [Unknown]
  - Expired product administered [Unknown]
